FAERS Safety Report 11440281 (Version 1)
Quarter: 2015Q3

REPORT INFORMATION
  Report Type: Spontaneous
  Country: US (occurrence: None)
  Receive Date: 20150831
  Receipt Date: 20150831
  Transmission Date: 20151125
  Serious: Yes (Hospitalization)
  Sender: FDA-Public Use
  Company Number: None

PATIENT
  Age: 29 Year
  Sex: Female
  Weight: 75 kg

DRUGS (7)
  1. PRAVASTATIN [Concomitant]
     Active Substance: PRAVASTATIN\PRAVASTATIN SODIUM
  2. MICRONOR [Concomitant]
     Active Substance: NORETHINDRONE
  3. INVOKANA [Suspect]
     Active Substance: CANAGLIFLOZIN
  4. PIOGLITAZONE. [Concomitant]
     Active Substance: PIOGLITAZONE
  5. DRISDOL [Concomitant]
     Active Substance: ERGOCALCIFEROL
  6. LISINOPRIL. [Concomitant]
     Active Substance: LISINOPRIL
  7. METOFORMIN [Concomitant]

REACTIONS (3)
  - Diabetic ketoacidosis [None]
  - Nausea [None]
  - Abdominal pain [None]

NARRATIVE: CASE EVENT DATE: 20150826
